FAERS Safety Report 8961644 (Version 1)
Quarter: 2012Q4

REPORT INFORMATION
  Report Type: 
  Country: US (occurrence: US)
  Receive Date: 20121212
  Receipt Date: 20121212
  Transmission Date: 20130627
  Serious: No
  Sender: FDA-Public Use
  Company Number: US-ASTRAZENECA-2012SE90599

PATIENT
  Sex: Female
  Weight: 158 kg

DRUGS (8)
  1. PULMICORT FLEXHALER [Suspect]
     Indication: ASTHMA
     Route: 055
     Dates: start: 2010, end: 2010
  2. PULMICORT FLEXHALER [Suspect]
     Indication: ASTHMA PROPHYLAXIS
     Route: 055
     Dates: start: 2010, end: 2010
  3. PULMICORT FLEXHALER [Suspect]
     Indication: SINUSITIS
     Route: 055
     Dates: start: 2010, end: 2010
  4. PULMICORT FLEXHALER [Suspect]
     Indication: ASTHMA
     Dosage: 180 MCG, 2 PUFFS, TWO TIMES A DAY
     Route: 055
     Dates: start: 20121026, end: 20121027
  5. PULMICORT FLEXHALER [Suspect]
     Indication: ASTHMA PROPHYLAXIS
     Dosage: 180 MCG, 2 PUFFS, TWO TIMES A DAY
     Route: 055
     Dates: start: 20121026, end: 20121027
  6. PULMICORT FLEXHALER [Suspect]
     Indication: SINUSITIS
     Dosage: 180 MCG, 2 PUFFS, TWO TIMES A DAY
     Route: 055
     Dates: start: 20121026, end: 20121027
  7. MULTIVITAMIN [Concomitant]
  8. FISH OIL [Concomitant]

REACTIONS (6)
  - Cough [Recovering/Resolving]
  - Dyspnoea [Recovering/Resolving]
  - Activities of daily living impaired [Unknown]
  - Drug ineffective [Recovered/Resolved]
  - Exposure during pregnancy [Unknown]
  - Off label use [Unknown]
